FAERS Safety Report 4355605-3 (Version None)
Quarter: 2004Q2

REPORT INFORMATION
  Report Type: 
  Country: None (occurrence: None)
  Receive Date: 20040510
  Receipt Date: 20040426
  Transmission Date: 20050107
  Serious: Yes (Death, Hospitalization)
  Sender: FDA-Public Use
  Company Number: 2004-06777

PATIENT
  Age: 43 Year
  Sex: Male

DRUGS (12)
  1. LAMIVUDINE [Suspect]
     Indication: HIV INFECTION
     Route: 048
     Dates: start: 20030101, end: 20040201
  2. ABACAVIR [Suspect]
     Indication: HIV INFECTION
     Route: 048
     Dates: start: 20030101, end: 20040101
  3. VIREAD [Suspect]
     Indication: HIV INFECTION
     Dosage: 300MG PER DAY
     Route: 048
     Dates: start: 20030101, end: 20040201
  4. BACTRIM [Suspect]
     Indication: PNEUMOCYSTIS CARINII PNEUMONIA
     Dosage: 960MG THREE TIMES PER WEEK
     Route: 048
     Dates: start: 20040109, end: 20040201
  5. BACTRIM [Suspect]
     Indication: PROPHYLAXIS
     Dosage: 960MG THREE TIMES PER WEEK
     Route: 048
     Dates: start: 20040109, end: 20040201
  6. ATAZANAVIR [Concomitant]
     Indication: HIV INFECTION
     Route: 048
     Dates: start: 20040120, end: 20040201
  7. RITONAVIR [Concomitant]
     Indication: HIV INFECTION
     Dosage: 100MG PER DAY
     Route: 048
     Dates: start: 20040120, end: 20040201
  8. AVELOX [Concomitant]
     Indication: MYCOBACTERIAL INFECTION
     Route: 065
  9. KLACID [Concomitant]
     Indication: MYCOBACTERIAL INFECTION
     Route: 065
  10. RIFABUTIN [Concomitant]
     Route: 065
  11. ZIENAM [Concomitant]
     Route: 065
  12. DIFLUCAN [Concomitant]
     Indication: STOMATITIS
     Route: 042

REACTIONS (23)
  - AIDS ENCEPHALOPATHY [None]
  - BIOPSY BONE MARROW ABNORMAL [None]
  - BONE MARROW DEPRESSION [None]
  - CACHEXIA [None]
  - CYTOMEGALOVIRUS GASTROINTESTINAL INFECTION [None]
  - DEHYDRATION [None]
  - DUODENITIS [None]
  - ENCEPHALITIS VIRAL [None]
  - ERYTHEMA INFECTIOSUM [None]
  - GAMMA-GLUTAMYLTRANSFERASE INCREASED [None]
  - GENERAL PHYSICAL HEALTH DETERIORATION [None]
  - HEPATOTOXICITY [None]
  - HIV WASTING SYNDROME [None]
  - MULTI-ORGAN FAILURE [None]
  - OESOPHAGEAL ULCER [None]
  - OTITIS EXTERNA [None]
  - PANCREATITIS [None]
  - PANCYTOPENIA [None]
  - RENAL FAILURE ACUTE [None]
  - SKIN PAPILLOMA [None]
  - SOMNOLENCE [None]
  - TRANSAMINASES INCREASED [None]
  - WEIGHT DECREASED [None]
